FAERS Safety Report 5968228-7 (Version None)
Quarter: 2008Q4

REPORT INFORMATION
  Report Type: 
  Country: None (occurrence: None)
  Receive Date: 20081126
  Receipt Date: 20081121
  Transmission Date: 20090506
  Serious: Yes (Other)
  Sender: FDA-Public Use
  Company Number: B0547308A

PATIENT
  Age: 4 Year
  Sex: Female

DRUGS (2)
  1. ALKERAN [Suspect]
     Indication: CHEMOTHERAPY
     Route: 042
  2. THIOTEPA [Suspect]
     Indication: CHEMOTHERAPY
     Route: 065

REACTIONS (4)
  - GRAND MAL CONVULSION [None]
  - HYPERTENSION [None]
  - REVERSIBLE POSTERIOR LEUKOENCEPHALOPATHY SYNDROME [None]
  - VISUAL IMPAIRMENT [None]
